FAERS Safety Report 17372863 (Version 2)
Quarter: 2020Q1

REPORT INFORMATION
  Report Type: Spontaneous
  Country: AU (occurrence: AU)
  Receive Date: 20200205
  Receipt Date: 20200225
  Transmission Date: 20200409
  Serious: Yes (Other)
  Sender: FDA-Public Use
  Company Number: PL-PFIZER INC-2020040704

PATIENT
  Age: 13 Year
  Sex: Male

DRUGS (3)
  1. METFORMIN [Concomitant]
     Active Substance: METFORMIN HYDROCHLORIDE
     Dosage: UNK
  2. DRUG, UNSPECIFIED [Suspect]
     Active Substance: UNSPECIFIED INGREDIENT
     Dosage: 0.5 U/KG/WEEK
     Route: 065
  3. OXANDROLONE. [Concomitant]
     Active Substance: OXANDROLONE
     Dosage: 0.05 MG/ KG/DAY

REACTIONS (5)
  - Diabetes mellitus [Recovered/Resolved]
  - Lethargy [Unknown]
  - Polydipsia [Unknown]
  - Polyuria [Unknown]
  - Weight decreased [Unknown]
